FAERS Safety Report 15443503 (Version 1)
Quarter: 2018Q3

REPORT INFORMATION
  Report Type: Other
  Country: DE (occurrence: DE)
  Receive Date: 20180928
  Receipt Date: 20180928
  Transmission Date: 20181010
  Serious: Yes (Death, Other)
  Sender: FDA-Public Use
  Company Number: DE-ALEXION PHARMACEUTICALS INC.-A201812570

PATIENT
  Age: 8 Year
  Sex: Male
  Weight: 24 kg

DRUGS (10)
  1. VINCRISTIN [Concomitant]
     Active Substance: VINCRISTINE
  2. CIDOFOVIR. [Concomitant]
     Active Substance: CIDOFOVIR
  3. SOLIRIS [Suspect]
     Active Substance: ECULIZUMAB
     Indication: OFF LABEL USE
  4. RITUXIMAB. [Concomitant]
     Active Substance: RITUXIMAB
  5. VORICONAZOLE. [Concomitant]
     Active Substance: VORICONAZOLE
  6. SOLIRIS [Suspect]
     Active Substance: ECULIZUMAB
     Indication: AUTOIMMUNE HAEMOLYTIC ANAEMIA
     Dosage: 600 MG, EVERY 15 DAYS
     Route: 042
     Dates: start: 20160127, end: 20160210
  7. SIROLIMUS. [Concomitant]
     Active Substance: SIROLIMUS
  8. URBASON                            /00049601/ [Suspect]
     Active Substance: METHYLPREDNISOLONE
     Indication: AUTOIMMUNE HAEMOLYTIC ANAEMIA
     Dosage: 2X2 2X120MG
     Route: 042
     Dates: start: 201510, end: 20160216
  9. BORTEZOMIB. [Concomitant]
     Active Substance: BORTEZOMIB
  10. CYCLOPHOSPHAMIDE. [Suspect]
     Active Substance: CYCLOPHOSPHAMIDE
     Indication: AUTOIMMUNE HAEMOLYTIC ANAEMIA
     Route: 065

REACTIONS (6)
  - Acute endocarditis [Fatal]
  - Sepsis [Fatal]
  - Off label use [Recovered/Resolved]
  - Thrombocytopenia [Fatal]
  - Neutropenia [Fatal]
  - Agranulocytosis [Fatal]

NARRATIVE: CASE EVENT DATE: 20160127
